FAERS Safety Report 6268778-2 (Version None)
Quarter: 2009Q3

REPORT INFORMATION
  Report Type: 
  Country: None (occurrence: None)
  Receive Date: 20090714
  Receipt Date: 20090714
  Transmission Date: 20100115
  Serious: No
  Sender: FDA-Public Use
  Company Number: None

PATIENT
  Age: 17 Year
  Sex: Female
  Weight: 54.4316 kg

DRUGS (1)
  1. DIFFERIN [Suspect]
     Indication: ACNE
     Dosage: THIN LAYER ON AFFECTED AREA EVERY NIGHT TOP
     Route: 061

REACTIONS (2)
  - ALOPECIA [None]
  - SELF ESTEEM DECREASED [None]
